FAERS Safety Report 8260626-4 (Version None)
Quarter: 2012Q2

REPORT INFORMATION
  Report Type: 
  Country: None (occurrence: None)
  Receive Date: 20120404
  Receipt Date: 20120321
  Transmission Date: 20120825
  Serious: No
  Sender: FDA-Public Use
  Company Number: US-BAXTER-2012BAX000959

PATIENT
  Sex: Female

DRUGS (1)
  1. GAMMAGARD LIQUID [Suspect]
     Dosage: UNKNOWN
     Route: 058

REACTIONS (3)
  - INFUSION SITE RASH [None]
  - PAIN [None]
  - MUSCULOSKELETAL STIFFNESS [None]
